FAERS Safety Report 6925159-3 (Version None)
Quarter: 2010Q3

REPORT INFORMATION
  Report Type: 
  Country: None (occurrence: None)
  Receive Date: 20100816
  Receipt Date: 20100719
  Transmission Date: 20110219
  Serious: No
  Sender: FDA-Public Use
  Company Number: US-PFIZER INC-2010090093

PATIENT
  Sex: Female
  Weight: 63 kg

DRUGS (1)
  1. CHANTIX [Suspect]
     Indication: SMOKING CESSATION THERAPY
     Dosage: 0.5MG DAILY
     Route: 048
     Dates: start: 20100712

REACTIONS (4)
  - FATIGUE [None]
  - FEELING HOT [None]
  - HOT FLUSH [None]
  - STOMATITIS [None]
